FAERS Safety Report 22154740 (Version 4)
Quarter: 2023Q4

REPORT INFORMATION
  Report Type: Spontaneous
  Country: US (occurrence: US)
  Receive Date: 20230330
  Receipt Date: 20231024
  Transmission Date: 20240110
  Serious: Yes (Other)
  Sender: FDA-Public Use
  Company Number: US-AMGEN-USASP2023052109

PATIENT
  Age: 44 Year
  Sex: Female

DRUGS (2)
  1. OTEZLA [Suspect]
     Active Substance: APREMILAST
     Indication: Psoriatic arthropathy
     Dosage: 30 MILLIGRAM, BID
     Route: 048
  2. CYCLOSPORINE [Concomitant]
     Active Substance: CYCLOSPORINE
     Dosage: 0.05 PERCENT OP, EMU
     Route: 065

REACTIONS (4)
  - Psoriatic arthropathy [Not Recovered/Not Resolved]
  - Autoimmune eye disorder [Not Recovered/Not Resolved]
  - Gastrointestinal disorder [Not Recovered/Not Resolved]
  - Abdominal discomfort [Not Recovered/Not Resolved]

NARRATIVE: CASE EVENT DATE: 20230301
